FAERS Safety Report 8598043-X (Version None)
Quarter: 2012Q3

REPORT INFORMATION
  Report Type: 
  Country: None (occurrence: None)
  Receive Date: 20120816
  Receipt Date: 20120808
  Transmission Date: 20120928
  Serious: Yes (Death)
  Sender: FDA-Public Use
  Company Number: GB-NOVOPROD-357647

PATIENT

DRUGS (2)
  1. VICTOZA [Suspect]
     Dosage: 1.2 A?G
     Route: 064
     Dates: start: 20110314, end: 20111102
  2. VICTOZA [Suspect]
     Indication: PRODUCT USED FOR UNKNOWN INDICATION
     Dosage: 1.2 A?G
     Route: 064
     Dates: start: 20110314, end: 20111102

REACTIONS (3)
  - FOETAL EXPOSURE DURING PREGNANCY [None]
  - UNIVENTRICULAR HEART [None]
  - FOETAL CARDIAC DISORDER [None]
